FAERS Safety Report 10096035 (Version 2)
Quarter: 2014Q2

REPORT INFORMATION
  Report Type: Spontaneous
  Country: US (occurrence: US)
  Receive Date: 20140422
  Receipt Date: 20140509
  Transmission Date: 20141212
  Serious: Yes (Hospitalization)
  Sender: FDA-Public Use
  Company Number: US-BAYER-2014-056569

PATIENT
  Age: 18 Year
  Sex: Female
  Weight: 123.81 kg

DRUGS (4)
  1. YAZ [Suspect]
  2. METFORMIN [Concomitant]
     Dosage: 500 MG, TID
     Route: 048
     Dates: start: 20070522
  3. AZITHROMYCIN [Concomitant]
     Dosage: 250 MG, UNK
     Route: 048
     Dates: start: 20070403
  4. PROVERA [Concomitant]

REACTIONS (2)
  - Deep vein thrombosis [Recovering/Resolving]
  - Pelvic venous thrombosis [None]
